FAERS Safety Report 25372268 (Version 1)
Quarter: 2025Q2

REPORT INFORMATION
  Report Type: Spontaneous
  Country: US (occurrence: US)
  Receive Date: 20250529
  Receipt Date: 20250529
  Transmission Date: 20250717
  Serious: No
  Sender: DR REDDYS
  Company Number: US-DRL-USA-USA/2025/05/007230

PATIENT
  Sex: Female

DRUGS (1)
  1. LOW-OGESTREL [Suspect]
     Active Substance: ETHINYL ESTRADIOL\NORGESTREL
     Indication: Contraception

REACTIONS (2)
  - Intentional product use issue [Unknown]
  - Product availability issue [Unknown]
